FAERS Safety Report 11322380 (Version 1)
Quarter: 2015Q3

REPORT INFORMATION
  Report Type: Spontaneous
  Country: US (occurrence: None)
  Receive Date: 20150729
  Receipt Date: 20150729
  Transmission Date: 20151125
  Serious: Yes (Death, Hospitalization)
  Sender: FDA-Public Use
  Company Number: None

PATIENT
  Age: 18 Year
  Sex: Male
  Weight: 95 kg

DRUGS (6)
  1. PREDNISONE. [Suspect]
     Active Substance: PREDNISONE
     Dates: start: 20150704
  2. VINCRISTINE SULFATE. [Suspect]
     Active Substance: VINCRISTINE SULFATE
     Dates: start: 20150626
  3. METHOTREXATE [Suspect]
     Active Substance: METHOTREXATE
     Dates: start: 20150702
  4. DAUNORUBICIN [Suspect]
     Active Substance: DAUNORUBICIN
     Dates: start: 20150626
  5. ONCASPAR [Suspect]
     Active Substance: PEGASPARGASE
     Dates: start: 20150616
  6. CYTARABINE. [Suspect]
     Active Substance: CYTARABINE
     Dates: start: 20150612

REACTIONS (4)
  - Systemic candida [None]
  - Histiocytosis haematophagic [None]
  - Quality of life decreased [None]
  - Herpes simplex [None]

NARRATIVE: CASE EVENT DATE: 20150725
